FAERS Safety Report 12985538 (Version 1)
Quarter: 2016Q4

REPORT INFORMATION
  Report Type: Spontaneous
  Country: FR (occurrence: FR)
  Receive Date: 20161130
  Receipt Date: 20161130
  Transmission Date: 20170207
  Serious: Yes (Hospitalization, Other)
  Sender: FDA-Public Use
  Company Number: FR-BRISTOL-MYERS SQUIBB COMPANY-BMS-2016-016016

PATIENT
  Age: 49 Year
  Sex: Male

DRUGS (1)
  1. METFORMIN HYDROCHLORIDE. [Suspect]
     Active Substance: METFORMIN HYDROCHLORIDE
     Indication: PRODUCT USED FOR UNKNOWN INDICATION
     Dosage: UNK
     Route: 048

REACTIONS (7)
  - Drug level increased [Recovering/Resolving]
  - Sepsis [Unknown]
  - Lactic acidosis [Unknown]
  - Alcohol poisoning [Unknown]
  - Hepatic cirrhosis [Unknown]
  - Dialysis [Unknown]
  - Overdose [Unknown]
